FAERS Safety Report 12173696 (Version 1)
Quarter: 2016Q1

REPORT INFORMATION
  Report Type: Spontaneous
  Country: US (occurrence: US)
  Receive Date: 20160314
  Receipt Date: 20160314
  Transmission Date: 20160526
  Serious: No
  Sender: FDA-Public Use
  Company Number: US-009507513-1603USA005625

PATIENT
  Age: 62 Year
  Sex: Female

DRUGS (1)
  1. EMEND [Suspect]
     Active Substance: APREPITANT
     Indication: BREAST CANCER STAGE IV
     Dosage: ONCE, EVERY 3 WEEKS
     Route: 042
     Dates: start: 20160310

REACTIONS (3)
  - Feeling abnormal [Unknown]
  - Product use issue [Unknown]
  - Euphoric mood [Unknown]

NARRATIVE: CASE EVENT DATE: 20160310
